FAERS Safety Report 7770572-8 (Version None)
Quarter: 2011Q3

REPORT INFORMATION
  Report Type: 
  Country: None (occurrence: None)
  Receive Date: 20110922
  Receipt Date: 20110909
  Transmission Date: 20111222
  Serious: Yes (Hospitalization)
  Sender: FDA-Public Use
  Company Number: PHHY2011FR80761

PATIENT
  Sex: Male
  Weight: 108 kg

DRUGS (7)
  1. LEVEMIR [Concomitant]
     Dosage: 1 DF, QD
  2. INDAPAMIDE [Concomitant]
     Dosage: 1 DF, QD
  3. ZOCOR [Concomitant]
     Dosage: 1 DF, QD
  4. ASPIRIN [Concomitant]
     Dosage: 1 DF, QD
  5. ALISKIREN [Suspect]
     Dosage: 300 MG, DAILY
  6. LERCANIDIPINE [Concomitant]
     Dosage: 1 DF, QD
  7. BISOPROLOL FUMARATE [Concomitant]
     Dosage: 1 DF, QD

REACTIONS (2)
  - ISCHAEMIC STROKE [None]
  - HEMIPARESIS [None]
